FAERS Safety Report 9802930 (Version 1)
Quarter: 2014Q1

REPORT INFORMATION
  Report Type: Spontaneous
  Country: US (occurrence: None)
  Receive Date: 20140106
  Receipt Date: 20140106
  Transmission Date: 20141002
  Serious: Yes (Life-Threatening, Other)
  Sender: FDA-Public Use
  Company Number: None

PATIENT
  Age: 61 Year
  Sex: Male
  Weight: 81.65 kg

DRUGS (1)
  1. METFORMIN [Suspect]
     Indication: DIABETES MELLITUS
     Dosage: 2X DAILY  TWICE DAILY  TAKEN BY MOUTH
     Route: 048

REACTIONS (11)
  - Emphysema [None]
  - Hypertension [None]
  - Peripheral arterial occlusive disease [None]
  - Gastrooesophageal reflux disease [None]
  - Dementia Alzheimer^s type [None]
  - General physical health deterioration [None]
  - Intestinal obstruction [None]
  - Abdominal distension [None]
  - Pain [None]
  - Flatulence [None]
  - Lactic acidosis [None]
